FAERS Safety Report 16882717 (Version 4)
Quarter: 2020Q2

REPORT INFORMATION
  Report Type: Spontaneous
  Country: CA (occurrence: CA)
  Receive Date: 20191003
  Receipt Date: 20200502
  Transmission Date: 20200713
  Serious: Yes (Other)
  Sender: FDA-Public Use
  Company Number: CA-CELLTRION INC.-2019CA022321

PATIENT

DRUGS (14)
  1. INFLECTRA [Suspect]
     Active Substance: INFLIXIMAB-DYYB
     Dosage: 450 MG, EVERY 8 WEEKS
     Route: 042
     Dates: start: 20190613, end: 20190613
  2. INFLECTRA [Suspect]
     Active Substance: INFLIXIMAB-DYYB
     Dosage: 450 MG, EVERY 6 WEEKS
     Route: 042
     Dates: start: 20200424
  3. INFLECTRA [Suspect]
     Active Substance: INFLIXIMAB-DYYB
     Dosage: 5 MG/KG, AT 0, 2, 6 WEEKS, THEN EVERY 8 WEEKS
     Route: 042
     Dates: start: 20190422, end: 20190422
  4. INFLECTRA [Suspect]
     Active Substance: INFLIXIMAB-DYYB
     Dosage: 450 MG, EVERY 6 WEEKS
     Route: 042
     Dates: start: 20190919, end: 20190919
  5. MEZAVANT [Concomitant]
     Active Substance: MESALAMINE
     Dosage: 4 DF, ONCE DAILY
     Route: 048
     Dates: start: 2015
  6. INFLECTRA [Suspect]
     Active Substance: INFLIXIMAB-DYYB
     Dosage: 450 MG, EVERY 6 WEEKS
     Route: 042
     Dates: start: 20200312
  7. TYLENOL [Concomitant]
     Active Substance: ACETAMINOPHEN
     Dosage: 500 MG, AS NEEDED
     Route: 048
  8. INFLECTRA [Suspect]
     Active Substance: INFLIXIMAB-DYYB
     Indication: COLITIS ULCERATIVE
     Dosage: 5 MG/KG, AT 0, 2, 6 WEEKS, THEN EVERY 8 WEEKS
     Route: 042
     Dates: start: 20180726, end: 20180726
  9. INFLECTRA [Suspect]
     Active Substance: INFLIXIMAB-DYYB
     Dosage: 450 MG, EVERY 8 WEEKS
     Route: 042
     Dates: start: 20190808, end: 20190808
  10. OMEGA 3 FISH OILS [Concomitant]
     Active Substance: OMEGA-3 FATTY ACIDS
     Dosage: UNK, DAILY
     Route: 048
  11. INFLECTRA [Suspect]
     Active Substance: INFLIXIMAB-DYYB
     Dosage: 450 MG, EVERY 6 WEEKS
     Route: 042
     Dates: start: 20200424
  12. PREDNISONE. [Concomitant]
     Active Substance: PREDNISONE
     Dosage: 40 MG, UNK (TAPERING)
     Route: 048
     Dates: start: 201805
  13. GRAVOL [Concomitant]
     Active Substance: DIMENHYDRINATE
     Dosage: UNK, AS NEEDED
     Route: 048
  14. PROBIOTICS [Concomitant]
     Active Substance: PROBIOTICS NOS
     Dosage: UNK
     Route: 048

REACTIONS (8)
  - Blood pressure fluctuation [Unknown]
  - Intentional product use issue [Unknown]
  - Product use issue [Unknown]
  - Frequent bowel movements [Unknown]
  - Malaise [Unknown]
  - Condition aggravated [Recovered/Resolved]
  - Rectal haemorrhage [Not Recovered/Not Resolved]
  - Off label use [Unknown]

NARRATIVE: CASE EVENT DATE: 20190613
